FAERS Safety Report 12526063 (Version 1)
Quarter: 2016Q3

REPORT INFORMATION
  Report Type: Spontaneous
  Country: US (occurrence: None)
  Receive Date: 20160701
  Receipt Date: 20160701
  Transmission Date: 20161109
  Serious: No
  Sender: FDA-Public Use
  Company Number: None

PATIENT
  Age: 61 Year
  Sex: Female
  Weight: 82.1 kg

DRUGS (13)
  1. FIBERCON [Concomitant]
     Active Substance: CALCIUM POLYCARBOPHIL
  2. ACETAMINOPHEN. [Concomitant]
     Active Substance: ACETAMINOPHEN
  3. PROBIOTIC 10 [Concomitant]
  4. B100 [Concomitant]
     Active Substance: MINERALS\VITAMINS
  5. GARLIC. [Concomitant]
     Active Substance: GARLIC
  6. XANAX [Concomitant]
     Active Substance: ALPRAZOLAM
  7. ZYRTEC [Concomitant]
     Active Substance: CETIRIZINE HYDROCHLORIDE
  8. VITAMIN C [Concomitant]
     Active Substance: ASCORBIC ACID
  9. NAPROXEN. [Concomitant]
     Active Substance: NAPROXEN
  10. VIMOVO [Suspect]
     Active Substance: ESOMEPRAZOLE MAGNESIUM\NAPROXEN
     Indication: ROTATOR CUFF SYNDROME
     Route: 048
     Dates: start: 20160624, end: 20160628
  11. BENADRYL [Concomitant]
     Active Substance: DIPHENHYDRAMINE HYDROCHLORIDE
  12. VITAMIN D3 [Concomitant]
     Active Substance: CHOLECALCIFEROL
  13. BIOTIN [Concomitant]
     Active Substance: BIOTIN

REACTIONS (3)
  - Pain in jaw [None]
  - Neck pain [None]
  - Glossodynia [None]

NARRATIVE: CASE EVENT DATE: 20160627
